FAERS Safety Report 5454202-6 (Version None)
Quarter: 2007Q3

REPORT INFORMATION
  Report Type: 
  Country: None (occurrence: None)
  Receive Date: 20070917
  Receipt Date: 20070531
  Transmission Date: 20080115
  Serious: Yes (Other)
  Sender: FDA-Public Use
  Company Number: US-ASTRAZENECA-2006UW11423

PATIENT
  Age: 17012 Day
  Sex: Male
  Weight: 98.6 kg

DRUGS (6)
  1. SEROQUEL [Suspect]
     Route: 048
     Dates: start: 20041001, end: 20060301
  2. GEODON [Concomitant]
  3. HALDOL [Concomitant]
  4. NAVANE [Concomitant]
  5. RISPERDAL [Concomitant]
  6. THORAZINE [Concomitant]

REACTIONS (2)
  - DIABETES MELLITUS [None]
  - DIABETIC COMA [None]
